FAERS Safety Report 9382504 (Version 1)
Quarter: 2013Q3

REPORT INFORMATION
  Report Type: Spontaneous
  Country: US (occurrence: US)
  Receive Date: 20130703
  Receipt Date: 20130703
  Transmission Date: 20140515
  Serious: Yes (Hospitalization)
  Sender: FDA-Public Use
  Company Number: US-GLAXOSMITHKLINE-A1027299A

PATIENT
  Age: 70 Year
  Sex: Female

DRUGS (14)
  1. ADVAIR [Suspect]
     Indication: ASTHMA
     Dosage: 1PUFF TWICE PER DAY
     Route: 055
     Dates: start: 20100910
  2. METOPROLOL [Concomitant]
  3. METFORMIN HCL [Concomitant]
  4. MAGNESIUM OXIDE [Concomitant]
  5. LOVASTATIN [Concomitant]
  6. LEVOTHYROXINE [Concomitant]
  7. HYDROCHLOROTHIAZIDE [Concomitant]
  8. FLUOXETINE [Concomitant]
  9. ZYRTEC [Concomitant]
  10. GLUCOSAMINE CHONDROITIN [Concomitant]
  11. MULTIVITAMIN [Concomitant]
  12. CALCIUM [Concomitant]
  13. NAPROXEN SODIUM [Concomitant]
  14. NASAL SPRAY [Concomitant]

REACTIONS (6)
  - Multiple allergies [Unknown]
  - Asthma [Not Recovered/Not Resolved]
  - Bronchitis chronic [Unknown]
  - Dyspnoea [Not Recovered/Not Resolved]
  - Hypersensitivity [Not Recovered/Not Resolved]
  - Drug ineffective [Unknown]
